FAERS Safety Report 13084071 (Version 1)
Quarter: 2017Q1

REPORT INFORMATION
  Report Type: Spontaneous
  Country: DK (occurrence: DK)
  Receive Date: 20170104
  Receipt Date: 20170104
  Transmission Date: 20170428
  Serious: Yes (Death, Hospitalization)
  Sender: FDA-Public Use
  Company Number: DK-TEVA-724385ACC

PATIENT
  Age: 85 Year
  Sex: Female

DRUGS (4)
  1. OXYNORM [Suspect]
     Active Substance: OXYCODONE HYDROCHLORIDE
     Indication: PAIN
     Route: 048
     Dates: start: 201601
  2. MORFIN ^SAD^ [Suspect]
     Active Substance: MORPHINE HYDROCHLORIDE
     Indication: PAIN
     Dates: start: 20160112
  3. MALFIN [Suspect]
     Active Substance: MORPHINE SULFATE
     Indication: PAIN
     Route: 048
     Dates: start: 20160112
  4. OXYCODONHYDROCHLORID ^LANNACHER^ [Suspect]
     Active Substance: OXYCODONE HYDROCHLORIDE
     Indication: PAIN
     Route: 048
     Dates: start: 201601

REACTIONS (8)
  - Large intestine perforation [Fatal]
  - Vomiting [Unknown]
  - Colostomy [Unknown]
  - Nausea [Unknown]
  - Abdominal pain [Unknown]
  - Dizziness [None]
  - Constipation [Fatal]
  - Somnolence [Unknown]

NARRATIVE: CASE EVENT DATE: 20160112
